APPROVED DRUG PRODUCT: HOMATROPINE METHYLBROMIDE AND HYDROCODONE BITARTRATE
Active Ingredient: HOMATROPINE METHYLBROMIDE; HYDROCODONE BITARTRATE
Strength: 1.5MG;5MG
Dosage Form/Route: TABLET;ORAL
Application: A040295 | Product #001
Applicant: ACTAVIS ELIZABETH LLC
Approved: Dec 1, 2000 | RLD: No | RS: No | Type: DISCN